FAERS Safety Report 4567969-6 (Version None)
Quarter: 2005Q1

REPORT INFORMATION
  Report Type: 
  Country: None (occurrence: None)
  Receive Date: 20050128
  Receipt Date: 20050112
  Transmission Date: 20050727
  Serious: Yes (Other)
  Sender: FDA-Public Use
  Company Number: 2005BI001111

PATIENT
  Age: 54 Year
  Sex: Male

DRUGS (13)
  1. AVONEX [Suspect]
     Indication: MULTIPLE SCLEROSIS
     Dosage: 30 UG; QW; IM
     Route: 030
     Dates: start: 19990301
  2. REBIF [Concomitant]
  3. DETROL [Concomitant]
  4. NEURONTIN [Concomitant]
  5. BACLOFEN [Concomitant]
  6. QUININE [Concomitant]
  7. DYSAPAN [Concomitant]
  8. AMANTADINE [Concomitant]
  9. CRESTOR [Concomitant]
  10. PROZAC [Concomitant]
  11. ANTIBIOTIC [Concomitant]
  12. NOVANTRONE [Concomitant]
  13. BETASERON [Concomitant]

REACTIONS (1)
  - COMA [None]
